FAERS Safety Report 19783080 (Version 1)
Quarter: 2021Q3

REPORT INFORMATION
  Report Type: Spontaneous
  Country: US (occurrence: US)
  Receive Date: 20210902
  Receipt Date: 20210902
  Transmission Date: 20211014
  Serious: No
  Sender: FDA-Public Use
  Company Number: US-ENDO PHARMACEUTICALS INC-2020-007567

PATIENT
  Sex: Female
  Weight: 47.17 kg

DRUGS (2)
  1. PREDNISONE. [Suspect]
     Active Substance: PREDNISONE
     Indication: PRODUCT USED FOR UNKNOWN INDICATION
     Dosage: 2 DF, DAILY IN MORNING
     Route: 065
     Dates: start: 201904
  2. METHOTREXATE. [Suspect]
     Active Substance: METHOTREXATE
     Indication: PRODUCT USED FOR UNKNOWN INDICATION
     Dosage: UNK UNKNOWN, WEEKLY
     Route: 065
     Dates: start: 201904

REACTIONS (5)
  - Gait inability [Unknown]
  - Feeding disorder [Unknown]
  - Drug ineffective [Unknown]
  - Weight increased [Unknown]
  - Pain [Unknown]
